FAERS Safety Report 8409470-5 (Version None)
Quarter: 2012Q2

REPORT INFORMATION
  Report Type: 
  Country: None (occurrence: None)
  Receive Date: 20120605
  Receipt Date: 20120530
  Transmission Date: 20120825
  Serious: Yes (Other)
  Sender: FDA-Public Use
  Company Number: US-AMGEN-USASP2012017209

PATIENT
  Sex: Male

DRUGS (7)
  1. FOLIC ACID [Concomitant]
     Dosage: 800 UNK, DAILY
  2. CALCIUM [Concomitant]
     Dosage: 2000 UNK, DAILY
  3. VITAMIN D [Concomitant]
     Dosage: 2000 UNK, DAILY
  4. AZULFIDINE [Concomitant]
     Dosage: 5 PILLS DAILY
     Dates: end: 20120127
  5. PREDNISONE [Concomitant]
     Dosage: 5 MG, DAILY
  6. ENBREL [Suspect]
     Dosage: 50 MG, QWK
     Route: 064
     Dates: start: 20080101, end: 20110618
  7. PRENATAL VITAMINS                  /01549301/ [Concomitant]
     Dosage: UNK UNK, QD

REACTIONS (3)
  - FEEDING DISORDER NEONATAL [None]
  - BODY TEMPERATURE FLUCTUATION [None]
  - PREMATURE BABY [None]
